FAERS Safety Report 18408810 (Version 2)
Quarter: 2022Q1

REPORT INFORMATION
  Report Type: Spontaneous
  Country: SE (occurrence: SE)
  Receive Date: 20201021
  Receipt Date: 20220307
  Transmission Date: 20220424
  Serious: Yes (Hospitalization)
  Sender: FDA-Public Use
  Company Number: SE-TEVA-2020-SE-1839473

PATIENT
  Age: 26 Year
  Sex: Female
  Weight: 126 kg

DRUGS (11)
  1. OXYCODONE [Suspect]
     Active Substance: OXYCODONE
     Indication: Analgesic therapy
     Route: 065
     Dates: start: 20200417
  2. ACETAMINOPHEN [Suspect]
     Active Substance: ACETAMINOPHEN
     Indication: Analgesic therapy
     Route: 065
     Dates: start: 20200417
  3. HUMAN RHO(D) IMMUNE GLOBULIN [Suspect]
     Active Substance: HUMAN RHO(D) IMMUNE GLOBULIN
     Indication: Rhesus antigen negative
     Route: 030
     Dates: start: 202003
  4. LEVOTHYROXINE [Suspect]
     Active Substance: LEVOTHYROXINE
     Indication: Hypothyroidism
     Dosage: 150 MICROGRAM DAILY;
     Route: 065
  5. DALTEPARIN [Suspect]
     Active Substance: DALTEPARIN
     Indication: Thrombosis prophylaxis
     Dosage: 7500 UNITS
     Route: 058
     Dates: start: 20200417
  6. BETAMETHASONE [Suspect]
     Active Substance: BETAMETHASONE
     Indication: Maternal therapy to enhance foetal lung maturity
     Dosage: 12 MG
     Route: 030
     Dates: start: 20200418
  7. BETAMETHASONE [Suspect]
     Active Substance: BETAMETHASONE
     Indication: Dysphagia
     Route: 065
     Dates: start: 202004, end: 202004
  8. BETAMETHASONE [Suspect]
     Active Substance: BETAMETHASONE
     Route: 065
     Dates: start: 202004, end: 202004
  9. BETAMETHASONE [Suspect]
     Active Substance: BETAMETHASONE
     Route: 065
     Dates: start: 202004, end: 202004
  10. CEFOTAXIME [Suspect]
     Active Substance: CEFOTAXIME SODIUM
     Indication: Bacterial infection
     Dosage: 6 GRAM DAILY; 2 G THRICE DAILY
     Route: 042
     Dates: start: 20200422
  11. MORPHINE [Suspect]
     Active Substance: MORPHINE
     Indication: Analgesic therapy
     Route: 042
     Dates: start: 202004, end: 202004

REACTIONS (5)
  - Overdose [Recovered/Resolved]
  - Somnolence [Recovered/Resolved]
  - Lethargy [Recovered/Resolved]
  - Miosis [Recovered/Resolved]
  - Maternal exposure during pregnancy [Unknown]
